FAERS Safety Report 9638832 (Version 1)
Quarter: 2013Q4

REPORT INFORMATION
  Report Type: Spontaneous
  Country: US (occurrence: US)
  Receive Date: 20131022
  Receipt Date: 20131022
  Transmission Date: 20140711
  Serious: No
  Sender: FDA-Public Use
  Company Number: US-BRISTOL-MYERS SQUIBB COMPANY-19158252

PATIENT
  Age: 75 Year
  Sex: Female

DRUGS (9)
  1. ELIQUIS [Suspect]
     Dates: start: 201308
  2. NEXIUM [Concomitant]
  3. VELCADE [Concomitant]
  4. SIMVASTATIN [Concomitant]
  5. LISINOPRIL [Concomitant]
  6. DILTIAZEM HCL [Concomitant]
  7. VITAMIN C [Concomitant]
  8. CENTRUM SILVER [Concomitant]
  9. WARFARIN [Concomitant]

REACTIONS (1)
  - Abdominal pain upper [Unknown]
